FAERS Safety Report 5643219-4 (Version None)
Quarter: 2008Q1

REPORT INFORMATION
  Report Type: 
  Country: None (occurrence: None)
  Receive Date: 20080226
  Receipt Date: 20080218
  Transmission Date: 20080703
  Serious: Yes (Other)
  Sender: FDA-Public Use
  Company Number: GXKR2008ES01757

PATIENT
  Age: 65 Year
  Sex: Male

DRUGS (5)
  1. AMLODIPINE [Suspect]
     Indication: HYPERTENSION
     Dosage: 5 MG, ORAL
     Route: 048
     Dates: start: 20071113, end: 20071128
  2. ACETAMINOPHEN [Concomitant]
  3. CLANZOFLAT (CLEBOPRIDE, DIMETICONE) [Concomitant]
  4. ALDARA [Concomitant]
  5. KALPRESS (VALSARTAN) [Concomitant]

REACTIONS (2)
  - ABNORMAL DREAMS [None]
  - PYELOCYSTITIS [None]
